FAERS Safety Report 13831155 (Version 1)
Quarter: 2017Q3

REPORT INFORMATION
  Report Type: Spontaneous
  Country: US (occurrence: US)
  Receive Date: 20170803
  Receipt Date: 20170803
  Transmission Date: 20171127
  Serious: Yes (Other)
  Sender: FDA-Public Use
  Company Number: US-BAYER-2017-143826

PATIENT
  Age: 49 Year
  Sex: Female

DRUGS (2)
  1. REGORAFENIB [Suspect]
     Active Substance: REGORAFENIB
     Indication: COLORECTAL CANCER
  2. TRIFLURIDINE. [Concomitant]
     Active Substance: TRIFLURIDINE

REACTIONS (3)
  - Empyema [None]
  - Chest wall abscess [None]
  - Drug intolerance [None]
